APPROVED DRUG PRODUCT: DEXCHLORPHENIRAMINE MALEATE
Active Ingredient: DEXCHLORPHENIRAMINE MALEATE
Strength: 2MG/5ML **Federal Register determination that product was not discontinued or withdrawn for safety or effectiveness reasons**
Dosage Form/Route: SYRUP;ORAL
Application: A088251 | Product #001
Applicant: PAI HOLDINGS LLC DBA PHARMACEUTICAL ASSOCIATES INC
Approved: Mar 23, 1984 | RLD: Yes | RS: No | Type: DISCN